FAERS Safety Report 6911639-3 (Version None)
Quarter: 2010Q3

REPORT INFORMATION
  Report Type: 
  Country: None (occurrence: None)
  Receive Date: 20100806
  Receipt Date: 20100804
  Transmission Date: 20110219
  Serious: Yes (Other)
  Sender: FDA-Public Use
  Company Number: GB-ROXANE LABORATORIES, INC.-2010-RO-00982RO

PATIENT
  Sex: Female

DRUGS (4)
  1. COCAINE [Suspect]
  2. METHADONE HCL [Suspect]
     Indication: DRUG DEPENDENCE
  3. HEROIN [Suspect]
  4. BENZODIAZEPINES [Suspect]

REACTIONS (1)
  - INTENTIONAL DRUG MISUSE [None]
